FAERS Safety Report 16272678 (Version 1)
Quarter: 2019Q2

REPORT INFORMATION
  Report Type: Spontaneous
  Country: US (occurrence: US)
  Receive Date: 20190503
  Receipt Date: 20190503
  Transmission Date: 20190711
  Serious: No
  Sender: FDA-Public Use
  Company Number: US-RADIUS HEALTH INC.-2018US003397

PATIENT
  Age: 72 Year
  Sex: Male
  Weight: 68.93 kg

DRUGS (7)
  1. CIALIS [Concomitant]
     Active Substance: TADALAFIL
     Indication: BENIGN PROSTATIC HYPERPLASIA
     Dosage: 5 MG, QD
     Route: 048
  2. FLUTICASONE PROPIONATE. [Concomitant]
     Active Substance: FLUTICASONE PROPIONATE
     Indication: HYPERSENSITIVITY
     Dosage: 2 SPRAYS, DAILY
     Route: 045
  3. TYMLOS [Suspect]
     Active Substance: ABALOPARATIDE
     Indication: SPINAL COMPRESSION FRACTURE
  4. PRAVASTATIN SODIUM. [Concomitant]
     Active Substance: PRAVASTATIN SODIUM
     Indication: BLOOD CHOLESTEROL INCREASED
     Dosage: 10 MG, QD
     Route: 048
  5. VITAMIN D                          /00107901/ [Concomitant]
     Active Substance: ERGOCALCIFEROL
     Indication: VITAMIN D DEFICIENCY
     Dosage: 1000 IU
     Route: 048
  6. ALEVE [Suspect]
     Active Substance: NAPROXEN SODIUM
     Indication: PAIN
     Dosage: 1-2 TABS, DAILY
     Route: 048
  7. TYMLOS [Suspect]
     Active Substance: ABALOPARATIDE
     Indication: OSTEOPOROSIS
     Dosage: 80 MCG, QD
     Route: 058
     Dates: start: 20181210, end: 20181212

REACTIONS (5)
  - Flushing [Unknown]
  - Palpitations [Unknown]
  - Blood pressure increased [Unknown]
  - Off label use [Unknown]
  - Tachyarrhythmia [Unknown]

NARRATIVE: CASE EVENT DATE: 20181211
